FAERS Safety Report 11296195 (Version 2)
Quarter: 2015Q4

REPORT INFORMATION
  Report Type: Spontaneous
  Country: US (occurrence: US)
  Receive Date: 20150722
  Receipt Date: 20151027
  Transmission Date: 20160304
  Serious: No
  Sender: FDA-Public Use
  Company Number: US-ELI_LILLY_AND_COMPANY-US201006004397

PATIENT
  Age: 82 Year
  Sex: Female

DRUGS (2)
  1. EVISTA [Suspect]
     Active Substance: RALOXIFENE HYDROCHLORIDE
     Indication: OSTEOPOROSIS
     Dosage: 60 MG, DAILY (1/D)
  2. FORTEO [Suspect]
     Active Substance: TERIPARATIDE
     Indication: OSTEOPOROSIS
     Dosage: 20 UG, DAILY (1/D)

REACTIONS (7)
  - Pathological fracture [Unknown]
  - Arthralgia [Recovering/Resolving]
  - Gait disturbance [Not Recovered/Not Resolved]
  - Discomfort [Not Recovered/Not Resolved]
  - Scoliosis [Not Recovered/Not Resolved]
  - Bone density decreased [Unknown]
  - Spinal fracture [Unknown]

NARRATIVE: CASE EVENT DATE: 200802
